FAERS Safety Report 8962984 (Version 2)
Quarter: 2013Q1

REPORT INFORMATION
  Report Type: Spontaneous
  Country: US (occurrence: None)
  Receive Date: 20121206
  Receipt Date: 20130109
  Transmission Date: 20140127
  Serious: Yes (Hospitalization)
  Sender: FDA-Public Use
  Company Number: 2012PROUSA02293

PATIENT
  Age: 65 Year
  Sex: Male

DRUGS (8)
  1. PROVENGE (SIPULEUCEL-T) SUSPENSION [Suspect]
     Indication: PROSTATE CANCER
     Dosage: SINGLE
     Route: 042
     Dates: start: 20121116, end: 20121116
  2. ZOCOR (SIMVASTATIN) [Concomitant]
  3. LISINOPRIL (LISINOPRIL) [Concomitant]
  4. ASPIRIN (ACETYLSALICYLIC ACID) [Concomitant]
  5. BICALUTAMIDE (BICALUTAMIDE) [Concomitant]
  6. LOTENSIN (BENAZEPRIL HYDROCHLORIDE) [Concomitant]
  7. METFORMIN (METFORMIN HYDROCHLORIDE) [Concomitant]
  8. TOPROL (METOPROLOL SUCCINATE) [Concomitant]

REACTIONS (9)
  - Sinus tachycardia [None]
  - Bradycardia [None]
  - Presyncope [None]
  - Rash macular [None]
  - Dyspnoea [None]
  - Paraesthesia oral [None]
  - Nausea [None]
  - Dizziness [None]
  - Hyperhidrosis [None]
